FAERS Safety Report 19195647 (Version 1)
Quarter: 2021Q2

REPORT INFORMATION
  Report Type: Spontaneous
  Country: CN (occurrence: CN)
  Receive Date: 20210429
  Receipt Date: 20210429
  Transmission Date: 20210717
  Serious: Yes (Hospitalization)
  Sender: FDA-Public Use
  Company Number: CN-009507513-2104CHN008156

PATIENT
  Age: 72 Year
  Sex: Male
  Weight: 67 kg

DRUGS (5)
  1. LOBAPLATIN [Suspect]
     Active Substance: LOBAPLATIN
     Dosage: DAY 1, 40 MILLIGRAM, THE SECOND CYCLE
     Dates: start: 20210327
  2. CPT?11 [Suspect]
     Active Substance: IRINOTECAN HYDROCHLORIDE
     Dosage: DAY1, 240 MILLIGRAM, THE SECOND CYCLE
     Dates: start: 20210327
  3. LOBAPLATIN [Suspect]
     Active Substance: LOBAPLATIN
     Indication: SMALL CELL LUNG CANCER METASTATIC
     Dosage: DAY 1, 40 MG, ONE TIME IN ONE DAY
     Route: 041
     Dates: start: 20210226, end: 20210226
  4. KEYTRUDA [Suspect]
     Active Substance: PEMBROLIZUMAB
     Indication: SMALL CELL LUNG CANCER METASTATIC
     Dosage: DAY 1, 200 MG, ONE TIME IN ONE DAY
     Route: 041
     Dates: start: 20210226, end: 20210226
  5. CPT?11 [Suspect]
     Active Substance: IRINOTECAN HYDROCHLORIDE
     Indication: SMALL CELL LUNG CANCER METASTATIC
     Dosage: DAY 1, 240 MG, ONE TIME IN ONE DAY
     Route: 041
     Dates: start: 20210226, end: 20210226

REACTIONS (2)
  - Pruritus [Recovering/Resolving]
  - Erythema [Recovering/Resolving]

NARRATIVE: CASE EVENT DATE: 20210227
